FAERS Safety Report 4544768-2 (Version None)
Quarter: 2004Q4

REPORT INFORMATION
  Report Type: 
  Country: None (occurrence: None)
  Receive Date: 20041230
  Receipt Date: 20041230
  Transmission Date: 20050328
  Serious: Yes (Disabling)
  Sender: FDA-Public Use
  Company Number: 2004-05357

PATIENT
  Age: 39 Year
  Sex: Female

DRUGS (2)
  1. TELSATR DEPOT     (TRIPTORELIN PAMOATE) [Suspect]
     Indication: UTERINE LEIOMYOMA
     Dosage: 3.75 MG (1/28 DAYS), INTRAMUSCULAR
     Route: 030
     Dates: start: 20041129
  2. TARDYFERON [Concomitant]

REACTIONS (2)
  - ASTHENIA [None]
  - POLYARTHRITIS [None]
